FAERS Safety Report 5655613-6 (Version None)
Quarter: 2008Q1

REPORT INFORMATION
  Report Type: 
  Country: None (occurrence: None)
  Receive Date: 20080307
  Receipt Date: 20080227
  Transmission Date: 20080703
  Serious: Yes (Hospitalization)
  Sender: FDA-Public Use
  Company Number: PH-JNJFOC-20080203129

PATIENT
  Age: 51 Year
  Sex: Male

DRUGS (2)
  1. INVEGA [Suspect]
     Indication: SCHIZOPHRENIA
     Route: 048
  2. SEROQUEL [Concomitant]
     Indication: INSOMNIA

REACTIONS (5)
  - CEREBROVASCULAR ACCIDENT [None]
  - DYSPHAGIA [None]
  - POSTURE ABNORMAL [None]
  - RESTLESSNESS [None]
  - SOMNOLENCE [None]
